FAERS Safety Report 4686524-0 (Version None)
Quarter: 2005Q2

REPORT INFORMATION
  Report Type: 
  Country: None (occurrence: None)
  Receive Date: 20050606
  Receipt Date: 20050523
  Transmission Date: 20051028
  Serious: Yes (Hospitalization)
  Sender: FDA-Public Use
  Company Number: 2005BI010119

PATIENT
  Age: 37 Year
  Sex: Female
  Weight: 79.8331 kg

DRUGS (2)
  1. AVONEX [Suspect]
     Indication: MULTIPLE SCLEROSIS
     Dosage: 30 UG;QW;IM
     Route: 030
     Dates: start: 20041001
  2. NORVASC [Concomitant]

REACTIONS (10)
  - ABASIA [None]
  - ANAEMIA [None]
  - BACK PAIN [None]
  - BREAST PAIN [None]
  - CHEST DISCOMFORT [None]
  - CHEST PAIN [None]
  - DYSPNOEA [None]
  - HYPOAESTHESIA [None]
  - INFLUENZA LIKE ILLNESS [None]
  - SENSATION OF HEAVINESS [None]
